FAERS Safety Report 15651960 (Version 2)
Quarter: 2019Q1

REPORT INFORMATION
  Report Type: Spontaneous
  Country: JP (occurrence: JP)
  Receive Date: 20181123
  Receipt Date: 20190220
  Transmission Date: 20190417
  Serious: Yes (Other)
  Sender: FDA-Public Use
  Company Number: JP-PFIZER INC-2018477100

PATIENT
  Age: 69 Year
  Sex: Male

DRUGS (8)
  1. LYRICA [Suspect]
     Active Substance: PREGABALIN
     Indication: NEURALGIA
     Dosage: 200 MG, DAILY
     Route: 048
     Dates: start: 20181010, end: 20181014
  2. MADOPAR [Concomitant]
     Active Substance: BENSERAZIDE HYDROCHLORIDE\LEVODOPA
     Dosage: UNK
  3. LEXAPRO [Concomitant]
     Active Substance: ESCITALOPRAM OXALATE
     Dosage: UNK
  4. BAYASPIRIN [Concomitant]
     Active Substance: ASPIRIN
     Dosage: UNK
  5. PRAMIPEXOLE. [Concomitant]
     Active Substance: PRAMIPEXOLE
     Dosage: UNK
  6. FURSULTIAMINE [Concomitant]
     Active Substance: FURSULTIAMINE
     Dosage: UNK
  7. THEOPHYLLINE [Concomitant]
     Active Substance: THEOPHYLLINE ANHYDROUS
     Dosage: UNK
  8. AMBROXOL [Concomitant]
     Active Substance: AMBROXOL
     Dosage: UNK

REACTIONS (3)
  - Alcohol poisoning [Recovered/Resolved]
  - Off label use [Unknown]
  - Somnolence [Unknown]

NARRATIVE: CASE EVENT DATE: 20181010
